FAERS Safety Report 7139082-5 (Version None)
Quarter: 2010Q4

REPORT INFORMATION
  Report Type: 
  Country: None (occurrence: None)
  Receive Date: 20101206
  Receipt Date: 20101201
  Transmission Date: 20110411
  Serious: Yes (Other)
  Sender: FDA-Public Use
  Company Number: B0677038A

PATIENT
  Sex: Female

DRUGS (8)
  1. DEROXAT [Suspect]
     Dosage: 20MG PER DAY
     Route: 048
  2. REMICADE [Suspect]
     Indication: ANKYLOSING SPONDYLITIS
     Route: 042
     Dates: start: 20020101, end: 20100601
  3. METHOTREXATE [Suspect]
     Dosage: 1.4286MG PER DAY
     Route: 048
     Dates: start: 19950101
  4. APRANAX [Suspect]
     Dosage: 550MG TWICE PER DAY
     Route: 048
  5. INEXIUM [Suspect]
     Dosage: 20MG PER DAY
     Route: 048
  6. IXPRIM [Suspect]
     Route: 048
  7. SPECIAFOLDINE [Concomitant]
     Dosage: 1TAB WEEKLY
     Route: 048
  8. ALPRAZOLAM [Concomitant]
     Dosage: .25MG PER DAY
     Route: 065

REACTIONS (9)
  - APHASIA [None]
  - DEMYELINATION [None]
  - DIZZINESS [None]
  - HYPOAESTHESIA [None]
  - MOTOR DYSFUNCTION [None]
  - MULTIPLE SCLEROSIS [None]
  - NERVOUS SYSTEM DISORDER [None]
  - NEUROPATHY PERIPHERAL [None]
  - NUCLEAR MAGNETIC RESONANCE IMAGING ABNORMAL [None]
